FAERS Safety Report 11723295 (Version 20)
Quarter: 2018Q2

REPORT INFORMATION
  Report Type: Spontaneous
  Country: US (occurrence: US)
  Receive Date: 20151111
  Receipt Date: 20180503
  Transmission Date: 20180711
  Serious: Yes (Life-Threatening, Congenital Anomaly, Other)
  Sender: FDA-Public Use
  Company Number: PHEH2015US023164

PATIENT
  Sex: Male

DRUGS (5)
  1. ONDANSETRON DR REDDY [Suspect]
     Active Substance: ONDANSETRON
     Indication: FOETAL EXPOSURE DURING PREGNANCY
     Dosage: MOTHER^S DOSE: 8 MG PRN
     Route: 064
  2. ONDANSETRON AUROBINDO [Suspect]
     Active Substance: ONDANSETRON HYDROCHLORIDE
     Indication: FOETAL EXPOSURE DURING PREGNANCY
     Dosage: MOTHER^S DOSE: 4 MG PRN AND 8 MG PRN
     Route: 064
  3. ZOFRAN [Suspect]
     Active Substance: ONDANSETRON HYDROCHLORIDE
     Indication: FOETAL EXPOSURE DURING PREGNANCY
     Dosage: MOTHER DOSE: 01 DF, Q6H.
     Route: 064
  4. ZOFRAN [Suspect]
     Active Substance: ONDANSETRON HYDROCHLORIDE
     Indication: FOETAL EXPOSURE DURING PREGNANCY
     Dosage: MOTHER DOSE: UNK
     Route: 064
  5. ONDANSETRON. [Suspect]
     Active Substance: ONDANSETRON
     Indication: FOETAL EXPOSURE DURING PREGNANCY
     Dosage: MOTHER^S DOSE: 8 MG, PRN
     Route: 064

REACTIONS (42)
  - Coarctation of the aorta [Unknown]
  - Respiratory distress [Unknown]
  - Bronchial hyperreactivity [Unknown]
  - Dehydration [Unknown]
  - Hypovolaemia [Unknown]
  - Asthma [Unknown]
  - Congenital anomaly [Unknown]
  - Patent ductus arteriosus [Unknown]
  - Left ventricular dysfunction [Unknown]
  - Diarrhoea [Unknown]
  - Colitis [Unknown]
  - Bronchitis [Unknown]
  - Emotional distress [Unknown]
  - Nasal congestion [Unknown]
  - Heart disease congenital [Unknown]
  - Cardiomyopathy neonatal [Unknown]
  - Selective eating disorder [Unknown]
  - Pain [Unknown]
  - Jaundice neonatal [Unknown]
  - Dyspnoea [Unknown]
  - Sneezing [Unknown]
  - Decreased appetite [Unknown]
  - Atrial septal defect [Unknown]
  - Aorta hypoplasia [Unknown]
  - Pneumonia [Unknown]
  - Anxiety [Unknown]
  - Gastroenteritis [Unknown]
  - Rhinorrhoea [Unknown]
  - Congestive cardiomyopathy [Unknown]
  - Injury [Unknown]
  - Constipation [Unknown]
  - Pyrexia [Unknown]
  - Congenital great vessel anomaly [Unknown]
  - Foetal exposure during pregnancy [Unknown]
  - Left ventricular dilatation [Unknown]
  - Upper respiratory tract infection [Unknown]
  - Cough [Unknown]
  - Tachypnoea [Unknown]
  - Mitral valve incompetence [Unknown]
  - Anhedonia [Unknown]
  - Abdominal pain [Unknown]
  - Wheezing [Unknown]
